FAERS Safety Report 7640058-X (Version None)
Quarter: 2011Q3

REPORT INFORMATION
  Report Type: 
  Country: None (occurrence: None)
  Receive Date: 20110727
  Receipt Date: 20110719
  Transmission Date: 20111222
  Serious: Yes (Hospitalization)
  Sender: FDA-Public Use
  Company Number: US-ASTRAZENECA-2011SE42815

PATIENT
  Age: 58 Year
  Sex: Male
  Weight: 113.4 kg

DRUGS (7)
  1. CRESTOR [Suspect]
     Indication: BLOOD CHOLESTEROL ABNORMAL
     Route: 048
  2. SEROQUEL XR [Suspect]
     Indication: DEPRESSION
     Route: 048
  3. UNKNOWN [Concomitant]
     Indication: BLOOD CHOLESTEROL ABNORMAL
  4. UNKNOWN [Concomitant]
     Indication: GASTRIC DISORDER
  5. UNKNOWN [Concomitant]
     Indication: HYPERTENSION
  6. UNKNOWN [Concomitant]
     Indication: DYSPNOEA
  7. UNKNOWN [Concomitant]
     Indication: SLEEP DISORDER

REACTIONS (3)
  - DYSPNOEA [None]
  - PALLOR [None]
  - HAEMORRHAGE [None]
